FAERS Safety Report 9432968 (Version 2)
Quarter: 2013Q3

REPORT INFORMATION
  Report Type: Report from Study
  Country: US (occurrence: US)
  Receive Date: 20130731
  Receipt Date: 20130806
  Transmission Date: 20140515
  Serious: Yes (Death)
  Sender: FDA-Public Use
  Company Number: GXBR2013US001459

PATIENT
  Age: 76 Year
  Sex: Male

DRUGS (12)
  1. ENOXAPARIN SODIUM [Suspect]
     Indication: THROMBOSIS PROPHYLAXIS
     Dosage: 60 MG, BID
     Route: 058
     Dates: start: 20130530
  2. AMLODIPINE [Concomitant]
     Indication: HYPERTENSION
     Dosage: 10 MG, QD
     Route: 048
  3. IBUPROFEN [Concomitant]
     Indication: PAIN
     Dosage: UNK DF, PRN
  4. VITAMIN D [Concomitant]
     Indication: VITAMIN D DECREASED
     Dosage: 50000 U, QMO
  5. ROBITUSSIN ^WYETH^ [Concomitant]
     Indication: COUGH
     Dosage: UNK DF, PRN
  6. SYNTHROID [Concomitant]
     Indication: HYPOTHYROIDISM
     Dosage: 25 UG, QD
     Route: 048
  7. ZOFRAN [Concomitant]
     Indication: NAUSEA
     Dosage: 8 MG, Q12H
     Route: 048
  8. FLUCONAZOLE [Concomitant]
     Indication: ORAL CANDIDIASIS
     Dosage: 200 MG, QD
  9. PREVACID [Concomitant]
     Indication: GASTROOESOPHAGEAL REFLUX DISEASE
     Dosage: 30 MG, QD
  10. ISOSOURCE [Concomitant]
     Indication: ENTERAL NUTRITION
     Dosage: 4-5 CANS QD (VIA PEG)
  11. IMODIUM [Concomitant]
     Indication: DIARRHOEA
     Dosage: UNK DF, PRN
  12. FLUOROURACIL [Concomitant]
     Indication: CHEMOTHERAPY
     Dosage: UNK DF, UNK

REACTIONS (1)
  - Oesophageal carcinoma [Fatal]
